FAERS Safety Report 10754707 (Version 1)
Quarter: 2015Q1

REPORT INFORMATION
  Report Type: Spontaneous
  Country: US (occurrence: US)
  Receive Date: 20150202
  Receipt Date: 20150202
  Transmission Date: 20150721
  Serious: No
  Sender: FDA-Public Use
  Company Number: US-TEVA-538074USA

PATIENT
  Age: 27 Year
  Sex: Female

DRUGS (2)
  1. PLAN B ONE-STEP [Suspect]
     Active Substance: LEVONORGESTREL
     Dosage: 1.5 MILLIGRAM DAILY;
     Route: 048
     Dates: start: 20141229, end: 20141229
  2. PLAN B ONE-STEP [Suspect]
     Active Substance: LEVONORGESTREL
     Indication: POST COITAL CONTRACEPTION
     Dosage: 1.5 MILLIGRAM DAILY;
     Route: 048
     Dates: start: 20141218, end: 20141218

REACTIONS (7)
  - Nausea [Not Recovered/Not Resolved]
  - Thyroid disorder [Recovered/Resolved]
  - Menstruation irregular [Not Recovered/Not Resolved]
  - Urticaria [Recovered/Resolved]
  - Insomnia [Not Recovered/Not Resolved]
  - Headache [Recovered/Resolved]
  - Metrorrhagia [Recovered/Resolved]

NARRATIVE: CASE EVENT DATE: 20141229
